FAERS Safety Report 16497116 (Version 1)
Quarter: 2019Q2

REPORT INFORMATION
  Report Type: Report from Study
  Country: DE (occurrence: DE)
  Receive Date: 20190628
  Receipt Date: 20190628
  Transmission Date: 20190711
  Serious: Yes (Death, Other)
  Sender: FDA-Public Use
  Company Number: DE-BRISTOL-MYERS SQUIBB COMPANY-BMS-2019-063723

PATIENT
  Age: 49 Year
  Sex: Male

DRUGS (4)
  1. IPILIMUMAB [Suspect]
     Active Substance: IPILIMUMAB
     Indication: MALIGNANT MELANOMA
     Dosage: 264 MILLIGRAM, Q3WK
     Route: 042
     Dates: start: 20181217, end: 20190107
  2. NIVOLUMAB [Suspect]
     Active Substance: NIVOLUMAB
     Indication: MALIGNANT MELANOMA
     Dosage: 88 MILLIGRAM, Q3WK
     Route: 042
     Dates: start: 20181217, end: 20190107
  3. NIVOLUMAB [Suspect]
     Active Substance: NIVOLUMAB
     Indication: PRODUCT USED FOR UNKNOWN INDICATION
     Dosage: 91 MILLIGRAM, Q3WK
     Route: 042
     Dates: start: 20190128, end: 20190128
  4. IPILIMUMAB [Suspect]
     Active Substance: IPILIMUMAB
     Indication: PRODUCT USED FOR UNKNOWN INDICATION
     Dosage: 273 MILLIGRAM, Q3WK
     Route: 042
     Dates: start: 20190128, end: 20190128

REACTIONS (4)
  - Cough [Unknown]
  - Dyspnoea [Recovered/Resolved]
  - Death [Fatal]
  - Pneumonitis [Unknown]

NARRATIVE: CASE EVENT DATE: 20190329
